FAERS Safety Report 5426153-4 (Version None)
Quarter: 2007Q3

REPORT INFORMATION
  Report Type: 
  Country: None (occurrence: None)
  Receive Date: 20070827
  Receipt Date: 20070816
  Transmission Date: 20080115
  Serious: Yes (Hospitalization)
  Sender: FDA-Public Use
  Company Number: US-GENENTECH-246246

PATIENT
  Age: 61 Year
  Sex: Male

DRUGS (2)
  1. BEVACIZUMAB [Suspect]
     Indication: PANCREATIC CARCINOMA
     Dosage: 930 MG, UNKNOWN
     Route: 065
  2. OXALIPLATIN [Concomitant]
     Indication: PANCREATIC CARCINOMA
     Dosage: 110 MG, UNKNOWN
     Route: 065
     Dates: start: 20070724

REACTIONS (3)
  - BLOOD PRESSURE INCREASED [None]
  - OEDEMA [None]
  - PYREXIA [None]
